FAERS Safety Report 5638870-1 (Version None)
Quarter: 2008Q1

REPORT INFORMATION
  Report Type: 
  Country: None (occurrence: None)
  Receive Date: 20080226
  Receipt Date: 20080211
  Transmission Date: 20080703
  Serious: Yes (Other)
  Sender: FDA-Public Use
  Company Number: US-BAYER-200713569BCC

PATIENT
  Age: 27 Year
  Sex: Female
  Weight: 51 kg

DRUGS (5)
  1. ALEVE [Suspect]
     Indication: MIGRAINE
     Dosage: TOTAL DAILY DOSE: 880 MG  UNIT DOSE: 220 MG
     Route: 048
     Dates: start: 20071018, end: 20071030
  2. IMITREX [Concomitant]
  3. TOPAMAX [Concomitant]
     Dates: start: 20070801
  4. BIRTH CONTROL [Concomitant]
  5. INDERAL [Concomitant]
     Dates: start: 20071201

REACTIONS (4)
  - ABDOMINAL PAIN [None]
  - FAECES DISCOLOURED [None]
  - HAEMATOCHEZIA [None]
  - PERIPHERAL COLDNESS [None]
